FAERS Safety Report 18717162 (Version 3)
Quarter: 2021Q1

REPORT INFORMATION
  Report Type: Report from Study
  Country: BR (occurrence: BR)
  Receive Date: 20210108
  Receipt Date: 20210213
  Transmission Date: 20210419
  Serious: Yes (Other)
  Sender: FDA-Public Use
  Company Number: BR-MYOVANT SCIENCES GMBH-2020MYSCI1000008

PATIENT
  Age: 43 Year
  Sex: Female
  Weight: 76 kg

DRUGS (4)
  1. IBUPROFEN. [Concomitant]
     Active Substance: IBUPROFEN
     Indication: ARTHRALGIA
     Dosage: 200 MILLIGRAM, PRN
     Route: 065
     Dates: start: 20191205
  2. TYLEX                              /00020001/ [Concomitant]
     Active Substance: ACETAMINOPHEN
     Indication: ARTHRALGIA
     Dosage: 1 TAB, PRN
     Route: 065
     Dates: start: 20191206
  3. RELUGOLIX. [Suspect]
     Active Substance: RELUGOLIX
     Indication: ENDOMETRIOSIS
     Dosage: 40 MILLIGRAM, QD
     Route: 048
     Dates: start: 20200305, end: 20201015
  4. 1.0 MG ESTRADIOL / 0.5 MG NORETHINDRONE ACETATE [Suspect]
     Active Substance: ESTRADIOL\NORETHINDRONE ACETATE
     Indication: ENDOMETRIOSIS
     Dosage: ESTRADIOL 1 MG /NORETHINDRONE ACETATE 0.5 MG, QD
     Route: 048
     Dates: start: 20200305, end: 20201015

REACTIONS (2)
  - Suicidal ideation [Recovered/Resolved]
  - Depression [Not Recovered/Not Resolved]

NARRATIVE: CASE EVENT DATE: 202009
